FAERS Safety Report 6509782-6 (Version None)
Quarter: 2009Q4

REPORT INFORMATION
  Report Type: 
  Country: None (occurrence: None)
  Receive Date: 20091222
  Receipt Date: 20091210
  Transmission Date: 20100525
  Serious: Yes (Hospitalization, Other)
  Sender: FDA-Public Use
  Company Number: US-AMGEN-QUU380003

PATIENT
  Sex: Female

DRUGS (8)
  1. ENBREL [Suspect]
     Indication: DRUG USE FOR UNKNOWN INDICATION
     Route: 058
     Dates: start: 20010101
  2. MOTRIN [Concomitant]
  3. PREVACID [Concomitant]
  4. ABILIFY [Concomitant]
  5. TRAZODONE HCL [Concomitant]
  6. ADDERALL 10 [Concomitant]
  7. LEXAPRO [Concomitant]
  8. PARAFON FORTE [Concomitant]

REACTIONS (24)
  - ANAEMIA [None]
  - APHASIA [None]
  - ASTHMA [None]
  - CENTRAL NERVOUS SYSTEM LESION [None]
  - CEREBROVASCULAR ACCIDENT [None]
  - DEPRESSION [None]
  - DIZZINESS [None]
  - DYSARTHRIA [None]
  - DYSPHAGIA [None]
  - GAIT DISTURBANCE [None]
  - HAEMORRHAGIC DIATHESIS [None]
  - HEAD DEFORMITY [None]
  - HEADACHE [None]
  - HYPOAESTHESIA FACIAL [None]
  - HYPOAESTHESIA ORAL [None]
  - INCREASED TENDENCY TO BRUISE [None]
  - JUVENILE ARTHRITIS [None]
  - MULTIPLE SCLEROSIS [None]
  - NECK PAIN [None]
  - NEOPLASM [None]
  - PAIN [None]
  - PAIN IN EXTREMITY [None]
  - TUBERCULIN TEST POSITIVE [None]
  - VASCULITIS [None]
